FAERS Safety Report 6089731-8 (Version None)
Quarter: 2009Q1

REPORT INFORMATION
  Report Type: 
  Country: None (occurrence: None)
  Receive Date: 20090224
  Receipt Date: 20090212
  Transmission Date: 20090719
  Serious: Yes (Other)
  Sender: FDA-Public Use
  Company Number: GB-GENENTECH-277580

PATIENT
  Age: 73 Year
  Sex: Female

DRUGS (1)
  1. AVASTIN [Suspect]
     Indication: DRUG USE FOR UNKNOWN INDICATION
     Dosage: 1.25 MG, UNK
     Route: 031

REACTIONS (3)
  - CONJUNCTIVAL HYPERAEMIA [None]
  - HYPOPYON [None]
  - IRIDOCYCLITIS [None]
